FAERS Safety Report 23464445 (Version 2)
Quarter: 2024Q1

REPORT INFORMATION
  Report Type: Spontaneous
  Country: US (occurrence: US)
  Receive Date: 20240201
  Receipt Date: 20240205
  Transmission Date: 20240410
  Serious: No
  Sender: FDA-Public Use
  Company Number: US-HALEON-USCH2024004743

PATIENT
  Age: 125 Year
  Sex: Female

DRUGS (2)
  1. ROBITUSSIN NOS [Suspect]
     Active Substance: ACETAMINOPHEN\CHLORPHENIRAMINE HYDROCHLORIDE\DEXTROMETHORPHAN\GUAIFENESIN\PHENYLPROPANOLAMINE HYDROC
     Indication: Sinusitis
     Dosage: UNK
     Dates: start: 20231203, end: 20231212
  2. ROBITUSSIN NOS [Suspect]
     Active Substance: ACETAMINOPHEN\CHLORPHENIRAMINE HYDROCHLORIDE\DEXTROMETHORPHAN\GUAIFENESIN\PHENYLPROPANOLAMINE HYDROC
     Indication: Pulmonary congestion

REACTIONS (5)
  - Headache [Unknown]
  - Illness [Unknown]
  - Condition aggravated [Unknown]
  - Recalled product administered [Unknown]
  - Medication error [Unknown]

NARRATIVE: CASE EVENT DATE: 20231201
